FAERS Safety Report 12912567 (Version 1)
Quarter: 2016Q4

REPORT INFORMATION
  Report Type: Spontaneous
  Country: US (occurrence: US)
  Receive Date: 20161104
  Receipt Date: 20161104
  Transmission Date: 20170207
  Serious: Yes (Death)
  Sender: FDA-Public Use
  Company Number: US-PFIZER INC-2016323097

PATIENT
  Age: 81 Year
  Sex: Male

DRUGS (2)
  1. IBRANCE [Suspect]
     Active Substance: PALBOCICLIB
     Dosage: 125 MG, CYCLIC (X21 DAYS)
     Dates: start: 20100816, end: 20160930
  2. IBRANCE [Suspect]
     Active Substance: PALBOCICLIB
     Indication: HEPATOCELLULAR CARCINOMA
     Dosage: 125 MG, CYCLIC (1 CAP DAILY FOR 21 DAYS AND OFF FOR 7 DAYS)
     Route: 048

REACTIONS (2)
  - Neoplasm progression [Fatal]
  - Product use issue [Unknown]
